FAERS Safety Report 8463726-9 (Version None)
Quarter: 2012Q2

REPORT INFORMATION
  Report Type: 
  Country: None (occurrence: None)
  Receive Date: 20120625
  Receipt Date: 20120618
  Transmission Date: 20120825
  Serious: Yes (Other)
  Sender: FDA-Public Use
  Company Number: PHHY2012ES051809

PATIENT
  Age: 38 Year
  Sex: Female

DRUGS (5)
  1. BUSCOPAN [Concomitant]
  2. DIAZEPAM [Concomitant]
  3. DICLOFENAC SODIUM [Suspect]
     Indication: PAIN
     Dosage: 50 MG, BID (50 MG EVERY 12 HOURS)
     Route: 030
  4. ACETAMINOPHEN [Concomitant]
  5. METAMIZOL [Concomitant]

REACTIONS (2)
  - OLIGOHYDRAMNIOS [None]
  - MATERNAL EXPOSURE DURING PREGNANCY [None]
